FAERS Safety Report 16066720 (Version 1)
Quarter: 2019Q1

REPORT INFORMATION
  Report Type: Spontaneous
  Country: US (occurrence: US)
  Receive Date: 20190212
  Receipt Date: 20190212
  Transmission Date: 20190418
  Serious: No
  Sender: FDA-Public Use
  Company Number: None

PATIENT
  Sex: Male

DRUGS (1)
  1. REPATHA [Suspect]
     Active Substance: EVOLOCUMAB
     Indication: TYPE V HYPERLIPIDAEMIA
     Dosage: ?          OTHER FREQUENCY:TWICE A MONTH;?TO ON HOLD
     Route: 058
     Dates: start: 201901

REACTIONS (9)
  - Nausea [None]
  - Toothache [None]
  - Dizziness [None]
  - Rhinorrhoea [None]
  - Diarrhoea [None]
  - Decreased appetite [None]
  - Myalgia [None]
  - Aphonia [None]
  - Sensitivity of teeth [None]
